FAERS Safety Report 10754064 (Version 2)
Quarter: 2015Q1

REPORT INFORMATION
  Report Type: Spontaneous
  Country: AT (occurrence: AT)
  Receive Date: 20150202
  Receipt Date: 20150218
  Transmission Date: 20150721
  Serious: Yes (Hospitalization)
  Sender: FDA-Public Use
  Company Number: AT-ROCHE-1527909

PATIENT
  Age: 53 Year
  Sex: Male
  Weight: 77 kg

DRUGS (5)
  1. MEXALEN [Concomitant]
     Active Substance: LUBIPROSTONE
     Route: 048
     Dates: start: 20150113, end: 20150114
  2. GAZYVARO [Suspect]
     Active Substance: OBINUTUZUMAB
     Indication: MANTLE CELL LYMPHOMA
     Dosage: DAY 1
     Route: 065
     Dates: start: 20150113, end: 20150113
  3. GAZYVARO [Suspect]
     Active Substance: OBINUTUZUMAB
     Dosage: DAY 2
     Route: 065
     Dates: start: 20150114, end: 20150114
  4. DIBONDRIN [Concomitant]
     Route: 065
     Dates: start: 20150113, end: 20150114
  5. DEXAMETHASON [Concomitant]
     Active Substance: DEXAMETHASONE
     Route: 042
     Dates: start: 20150113, end: 20150114

REACTIONS (3)
  - Off label use [Unknown]
  - Tumour lysis syndrome [Recovered/Resolved]
  - Acute kidney injury [Recovered/Resolved]

NARRATIVE: CASE EVENT DATE: 20150114
